FAERS Safety Report 8672986 (Version 2)
Quarter: 2012Q4

REPORT INFORMATION
  Report Type: 
  Country: ES (occurrence: ES)
  Receive Date: 20120719
  Receipt Date: 20121119
  Transmission Date: 20130627
  Serious: Yes (Other)
  Sender: FDA-Public Use
  Company Number: ES-ROCHE-1088342

PATIENT
  Age: 44 Year
  Sex: Female

DRUGS (2)
  1. HERCEPTIN [Suspect]
     Indication: BREAST CANCER
     Route: 042
     Dates: start: 201109
  2. TAMOXIFEN [Concomitant]
     Indication: BREAST CANCER
     Route: 048
     Dates: start: 201111

REACTIONS (3)
  - Nervousness [Recovered/Resolved with Sequelae]
  - Thyroiditis subacute [Recovered/Resolved]
  - Palpitations [Recovered/Resolved with Sequelae]
